FAERS Safety Report 8135145-6 (Version None)
Quarter: 2012Q1

REPORT INFORMATION
  Report Type: 
  Country: None (occurrence: None)
  Receive Date: 20120214
  Receipt Date: 20120209
  Transmission Date: 20120608
  Serious: No
  Sender: FDA-Public Use
  Company Number: US-PFIZER INC-2012029342

PATIENT
  Sex: Female

DRUGS (3)
  1. ESTROGENS CONJUGATED [Concomitant]
     Dosage: UNK
  2. PREMARIN [Suspect]
     Dosage: 0.625 MG, UNK
  3. ESTRADIOL [Concomitant]
     Dosage: UNK

REACTIONS (3)
  - HEADACHE [None]
  - FATIGUE [None]
  - ASTHENIA [None]
